FAERS Safety Report 18030051 (Version 2)
Quarter: 2021Q2

REPORT INFORMATION
  Report Type: Spontaneous
  Country: US (occurrence: US)
  Receive Date: 20200715
  Receipt Date: 20210428
  Transmission Date: 20210717
  Serious: Yes (Other)
  Sender: FDA-Public Use
  Company Number: US-PFIZER INC-2019363310

PATIENT
  Age: 65 Year
  Sex: Male

DRUGS (3)
  1. LYRICA [Suspect]
     Active Substance: PREGABALIN
     Dosage: ONE 200 MG CAPSULE THREE TIMES DAILY ORALLY FOR 90 DAYS
     Route: 048
  2. LYRICA [Suspect]
     Active Substance: PREGABALIN
     Indication: FIBROMYALGIA
     Dosage: 300 MG, 2X/DAY
     Route: 048
  3. LYRICA [Suspect]
     Active Substance: PREGABALIN
     Dosage: ONE 225 MG CAPSULE TWICE DAILY ORALLY FOR 30 DAYS
     Route: 048

REACTIONS (3)
  - Off label use [Unknown]
  - Spinal disorder [Unknown]
  - Device breakage [Unknown]
